FAERS Safety Report 8091428-X (Version None)
Quarter: 2012Q1

REPORT INFORMATION
  Report Type: 
  Country: None (occurrence: None)
  Receive Date: 20120129
  Receipt Date: 20111107
  Transmission Date: 20120608
  Serious: No
  Sender: FDA-Public Use
  Company Number: US-ABBOTT-10P-163-0630532-00

PATIENT
  Sex: Female
  Weight: 59.02 kg

DRUGS (12)
  1. BACTRIM [Concomitant]
     Indication: CYSTITIS
  2. WELLBUTRIN [Concomitant]
     Indication: DEPRESSION
     Dosage: DAILY
  3. PROBIOTIC [Concomitant]
     Indication: PRODUCT USED FOR UNKNOWN INDICATION
     Dosage: OFF AND ON
  4. HUMIRA [Suspect]
     Indication: CROHN'S DISEASE
     Route: 058
     Dates: start: 20100112
  5. STOOL SOFTNER [Concomitant]
     Indication: PRODUCT USED FOR UNKNOWN INDICATION
     Dosage: OFF AND ON
  6. HUMIRA [Suspect]
     Dates: start: 20091201
  7. PENTASA [Concomitant]
     Indication: PRODUCT USED FOR UNKNOWN INDICATION
  8. BACTRIM [Concomitant]
     Indication: PROPHYLAXIS
  9. BACLOFEN [Concomitant]
     Indication: PRODUCT USED FOR UNKNOWN INDICATION
     Dosage: TID
  10. PREDNISONE TAB [Concomitant]
     Indication: PRODUCT USED FOR UNKNOWN INDICATION
  11. PRILOSEC [Concomitant]
     Indication: PRODUCT USED FOR UNKNOWN INDICATION
     Dosage: OTC DAILY
  12. MULTI-VITAMIN [Concomitant]
     Indication: PRODUCT USED FOR UNKNOWN INDICATION
     Dosage: DAILY

REACTIONS (8)
  - CHILLS [None]
  - PARAESTHESIA [None]
  - FAECAL INCONTINENCE [None]
  - HYPERHIDROSIS [None]
  - HEADACHE [None]
  - HYPOTENSION [None]
  - DIARRHOEA [None]
  - HYPOAESTHESIA [None]
